FAERS Safety Report 4816550-X (Version None)
Quarter: 2005Q4

REPORT INFORMATION
  Report Type: 
  Country: None (occurrence: None)
  Receive Date: 20051101
  Receipt Date: 20051025
  Transmission Date: 20060501
  Serious: Yes (Death, Hospitalization)
  Sender: FDA-Public Use
  Company Number: PHBS2005US15718

PATIENT
  Age: 13 Year
  Sex: Male

DRUGS (5)
  1. CYCLOSPORINE [Suspect]
     Indication: BONE MARROW TRANSPLANT
     Route: 065
  2. METHOTREXATE [Concomitant]
     Indication: BONE MARROW TRANSPLANT
     Route: 065
  3. BUSULFAN [Concomitant]
     Indication: BONE MARROW TRANSPLANT
     Dosage: 0.8 MG/KG, QID
     Route: 042
  4. CYCLOPHOSPHAMIDE [Concomitant]
     Indication: BONE MARROW TRANSPLANT
     Dosage: 50 MG/KG/D
  5. URSODEOXYCHOLIC ACID [Concomitant]
     Dosage: 150 MG, BID
     Route: 048

REACTIONS (30)
  - ASCITES [None]
  - ASTHENIA [None]
  - AZOTAEMIA [None]
  - BLOOD BILIRUBIN INCREASED [None]
  - BLOOD MAGNESIUM INCREASED [None]
  - BLOOD SODIUM DECREASED [None]
  - CANDIDA SEPSIS [None]
  - CENTRAL PONTINE MYELINOLYSIS [None]
  - DEPRESSED LEVEL OF CONSCIOUSNESS [None]
  - DRUG LEVEL INCREASED [None]
  - DYSARTHRIA [None]
  - DYSPHAGIA [None]
  - ENCEPHALOPATHY [None]
  - FLUID RETENTION [None]
  - GAZE PALSY [None]
  - HAEMODYNAMIC INSTABILITY [None]
  - HEPATIC FUNCTION ABNORMAL [None]
  - HEPATIC VEIN OCCLUSION [None]
  - HYPERAMMONAEMIA [None]
  - JAUNDICE [None]
  - LIFE SUPPORT [None]
  - LIVER TENDERNESS [None]
  - MULTI-ORGAN FAILURE [None]
  - NUCLEAR MAGNETIC RESONANCE IMAGING BRAIN ABNORMAL [None]
  - PERITONEAL DIALYSIS [None]
  - PERITONITIS [None]
  - PORTAL VEIN OCCLUSION [None]
  - PSEUDOBULBAR PALSY [None]
  - RENAL IMPAIRMENT [None]
  - WEIGHT INCREASED [None]
